FAERS Safety Report 5878574-3 (Version None)
Quarter: 2008Q3

REPORT INFORMATION
  Report Type: 
  Country: None (occurrence: None)
  Receive Date: 20080909
  Receipt Date: 20080826
  Transmission Date: 20090109
  Serious: Yes (Death, Hospitalization)
  Sender: FDA-Public Use
  Company Number: 2008001447

PATIENT
  Age: 67 Year
  Sex: Male

DRUGS (1)
  1. ERLOTINIB(ERLOTINIB) (TABLET) (ERLOTINIB) [Suspect]
     Indication: LUNG NEOPLASM MALIGNANT
     Dosage: (300 MG, QD), ORAL
     Route: 048
     Dates: start: 20080418, end: 20080610

REACTIONS (3)
  - NEOPLASM PROGRESSION [None]
  - PURPURA [None]
  - VASCULITIS [None]
